FAERS Safety Report 20708167 (Version 1)
Quarter: 2022Q2

REPORT INFORMATION
  Report Type: Spontaneous
  Country: US (occurrence: US)
  Receive Date: 20220414
  Receipt Date: 20220414
  Transmission Date: 20220721
  Serious: Yes (Hospitalization, Other)
  Sender: FDA-Public Use
  Company Number: US-NOVOPROD-907715

PATIENT
  Age: 95 Year
  Sex: Male

DRUGS (2)
  1. NOVOLOG MIX 70/30 [Suspect]
     Active Substance: INSULIN ASPART
     Indication: Product used for unknown indication
     Dosage: 1-2 UNITS ONCE A DAY
     Route: 058
     Dates: start: 2008
  2. LEVEMIR [Suspect]
     Active Substance: INSULIN DETEMIR
     Indication: Product used for unknown indication
     Dosage: 10 IU, QD
     Route: 058
     Dates: start: 2012

REACTIONS (9)
  - Anaemia [Unknown]
  - Fall [Unknown]
  - Coronary artery bypass [Unknown]
  - Hip arthroplasty [Unknown]
  - Knee arthroplasty [Unknown]
  - Heart valve operation [Unknown]
  - Bladder cancer [Unknown]
  - Arthralgia [Unknown]
  - Limb asymmetry [Unknown]

NARRATIVE: CASE EVENT DATE: 20210301
